FAERS Safety Report 11276126 (Version 2)
Quarter: 2015Q3

REPORT INFORMATION
  Report Type: Spontaneous
  Country: US (occurrence: US)
  Receive Date: 20150716
  Receipt Date: 20150722
  Transmission Date: 20151125
  Serious: No
  Sender: FDA-Public Use
  Company Number: US-BAYER-2015-373672

PATIENT
  Age: 71 Year
  Sex: Female

DRUGS (20)
  1. SUCRALFATE. [Concomitant]
     Active Substance: SUCRALFATE
  2. LIDOCAINE. [Concomitant]
     Active Substance: LIDOCAINE
  3. ASPIRIN. [Concomitant]
     Active Substance: ASPIRIN
  4. FOLIC ACID. [Concomitant]
     Active Substance: FOLIC ACID
  5. DOCUSATE [Concomitant]
     Active Substance: DOCUSATE
  6. CALCIUM ACETATE. [Concomitant]
     Active Substance: CALCIUM ACETATE
  7. COMPAZINE [Concomitant]
     Active Substance: PROCHLORPERAZINE MALEATE
  8. OXYCONTIN [Concomitant]
     Active Substance: OXYCODONE HYDROCHLORIDE
     Indication: PAIN
     Dosage: UNK
     Dates: start: 20150711
  9. PANTOPRAZOLE [Concomitant]
     Active Substance: PANTOPRAZOLE SODIUM
  10. CENTRUM [Concomitant]
     Active Substance: VITAMINS
  11. NEXAVAR [Suspect]
     Active Substance: SORAFENIB
     Dosage: 400 MG, BID
     Route: 048
     Dates: end: 20150713
  12. LORAZEPAM. [Concomitant]
     Active Substance: LORAZEPAM
  13. CLOTRIMAZOLE. [Concomitant]
     Active Substance: CLOTRIMAZOLE
  14. GABAPENTIN. [Concomitant]
     Active Substance: GABAPENTIN
  15. ISOSORBIDE. [Concomitant]
     Active Substance: ISOSORBIDE
  16. CARVEDILOL. [Concomitant]
     Active Substance: CARVEDILOL
  17. NORCO [Concomitant]
     Active Substance: ACETAMINOPHEN\HYDROCODONE BITARTRATE
  18. URSODIOL. [Concomitant]
     Active Substance: URSODIOL
  19. VITAMIN D [Concomitant]
     Active Substance: CHOLECALCIFEROL
  20. TRAMADOL. [Concomitant]
     Active Substance: TRAMADOL

REACTIONS (7)
  - Rash [Recovering/Resolving]
  - Stomatitis [Not Recovered/Not Resolved]
  - Flushing [Not Recovered/Not Resolved]
  - Blister [Not Recovered/Not Resolved]
  - Fatigue [None]
  - Nausea [Recovered/Resolved]
  - Facial pain [None]

NARRATIVE: CASE EVENT DATE: 20150703
